FAERS Safety Report 24574644 (Version 2)
Quarter: 2024Q4

REPORT INFORMATION
  Report Type: Report from Study
  Country: US (occurrence: US)
  Receive Date: 20241104
  Receipt Date: 20241206
  Transmission Date: 20250115
  Serious: Yes (Death)
  Sender: AMGEN
  Company Number: US-AMGEN-USASP2024191458

PATIENT
  Age: 18 Year
  Sex: Female

DRUGS (2)
  1. RIABNI [Suspect]
     Active Substance: RITUXIMAB-ARRX
     Indication: Encephalitis autoimmune
     Dosage: UNK
     Route: 065
  2. RIABNI [Suspect]
     Active Substance: RITUXIMAB-ARRX
     Indication: Off label use

REACTIONS (4)
  - Death [Fatal]
  - Rash [Unknown]
  - Swelling [Unknown]
  - Off label use [Unknown]
